FAERS Safety Report 23149661 (Version 1)
Quarter: 2023Q4

REPORT INFORMATION
  Report Type: Spontaneous
  Country: US (occurrence: None)
  Receive Date: 20231104
  Receipt Date: 20231104
  Transmission Date: 20240110
  Serious: Yes (Other)
  Sender: FDA-Public Use
  Company Number: None

PATIENT
  Age: 37 Year
  Sex: Male
  Weight: 94.5 kg

DRUGS (3)
  1. DIETARY SUPPLEMENT [Suspect]
     Active Substance: DIETARY SUPPLEMENT
     Indication: Erectile dysfunction
     Dosage: OTHER QUANTITY : 1 CAPSULE(S);?FREQUENCY : AT BEDTIME;?
     Route: 048
     Dates: start: 20231028, end: 20231028
  2. HERBALS\MITRAGYNINE [Suspect]
     Active Substance: HERBALS\MITRAGYNINE
  3. SILDENAFIL [Suspect]
     Active Substance: SILDENAFIL

REACTIONS (5)
  - Visual impairment [None]
  - Mydriasis [None]
  - Therapeutic response unexpected [None]
  - Euphoric mood [None]
  - Euphoric mood [None]

NARRATIVE: CASE EVENT DATE: 20231028
